FAERS Safety Report 20098629 (Version 1)
Quarter: 2021Q4

REPORT INFORMATION
  Report Type: Spontaneous
  Country: US (occurrence: US)
  Receive Date: 20211122
  Receipt Date: 20211122
  Transmission Date: 20220303
  Serious: No
  Sender: FDA-Public Use
  Company Number: US-BRACCO-2021US02630

PATIENT
  Age: 39 Year
  Sex: Male

DRUGS (3)
  1. LUMASON [Suspect]
     Active Substance: SULFUR HEXAFLUORIDE
     Indication: Ultrasound scan
     Dosage: 2 ML, SINGLE
     Dates: start: 20210618, end: 20210618
  2. LUMASON [Suspect]
     Active Substance: SULFUR HEXAFLUORIDE
     Indication: Ultrasound scan
     Dosage: 2 ML, SINGLE
     Dates: start: 20210618, end: 20210618
  3. LUMASON [Suspect]
     Active Substance: SULFUR HEXAFLUORIDE
     Indication: Ultrasound scan
     Dosage: 2 ML, SINGLE
     Dates: start: 20210618, end: 20210618

REACTIONS (4)
  - Restlessness [Unknown]
  - Retching [Unknown]
  - Abdominal pain upper [Unknown]
  - Hot flush [Unknown]

NARRATIVE: CASE EVENT DATE: 20210618
